FAERS Safety Report 7653368-7 (Version None)
Quarter: 2011Q3

REPORT INFORMATION
  Report Type: 
  Country: None (occurrence: None)
  Receive Date: 20110722
  Receipt Date: 20110405
  Transmission Date: 20111222
  Serious: Yes (Hospitalization)
  Sender: FDA-Public Use
  Company Number: UTC-006157

PATIENT
  Age: 46 Year
  Sex: Female

DRUGS (8)
  1. LASIX [Concomitant]
  2. COREG [Concomitant]
  3. TRACLEER [Concomitant]
  4. BROMOCRIPTINE MESYLATE [Concomitant]
  5. SPIRONOLACTONE [Concomitant]
  6. ASPIRIN TAB [Concomitant]
  7. REMODULIN [Suspect]
     Indication: PULMONARY ARTERIAL HYPERTENSION
     Dosage: SUBCUTANEOUS
     Route: 058
     Dates: start: 20110125
  8. REGLAN [Concomitant]

REACTIONS (3)
  - INFUSION SITE HAEMATOMA [None]
  - CELLULITIS [None]
  - INFUSION SITE INFECTION [None]
